FAERS Safety Report 16938848 (Version 6)
Quarter: 2020Q1

REPORT INFORMATION
  Report Type: Spontaneous
  Country: DE (occurrence: DE)
  Receive Date: 20191020
  Receipt Date: 20200224
  Transmission Date: 20200409
  Serious: Yes (Hospitalization, Other)
  Sender: FDA-Public Use
  Company Number: PHHY2019DE203407

PATIENT
  Age: 32 Year
  Sex: Male
  Weight: 116.5 kg

DRUGS (21)
  1. TIZANIDINE. [Suspect]
     Active Substance: TIZANIDINE
     Indication: PRODUCT USED FOR UNKNOWN INDICATION
     Dosage: 12 MILLIGRAM, QD
     Route: 065
  2. PREGABALIN. [Suspect]
     Active Substance: PREGABALIN
     Dosage: 300 MG, QD
     Route: 065
     Dates: start: 201706
  3. DOXEPIN [Suspect]
     Active Substance: DOXEPIN
     Dosage: DOSE BETWEEN 50-0 MG PER DAY)
     Route: 048
     Dates: start: 20160830, end: 20160831
  4. DOXEPIN [Suspect]
     Active Substance: DOXEPIN
     Dosage: 52.5 MG, QD
     Route: 065
     Dates: start: 2017
  5. SIRDALUD [Suspect]
     Active Substance: TIZANIDINE
     Dosage: UNK, DOSE TAPER FROM 5 MG TO 0
     Route: 048
     Dates: start: 20160830, end: 20160906
  6. LITHIUM CARBONATE. [Suspect]
     Active Substance: LITHIUM CARBONATE
     Indication: PRODUCT USED FOR UNKNOWN INDICATION
     Dosage: 1125 MG, QD
     Route: 065
     Dates: start: 201511, end: 20160730
  7. OMEPRAZOLE. [Concomitant]
     Active Substance: OMEPRAZOLE
     Indication: GASTROINTESTINAL DISORDER
     Dosage: 20 MG, QD
     Route: 065
     Dates: start: 20171110, end: 20171121
  8. SIRDALUD [Suspect]
     Active Substance: TIZANIDINE
     Indication: MUSCLE RELAXANT THERAPY
     Dosage: 12 MG, QD
     Route: 048
     Dates: start: 201605
  9. BUPROPION. [Concomitant]
     Active Substance: BUPROPION
     Indication: PRODUCT USED FOR UNKNOWN INDICATION
     Dosage: UNK
     Route: 065
  10. DOXEPIN [Suspect]
     Active Substance: DOXEPIN
     Indication: ANTIDEPRESSANT THERAPY
     Dosage: DOSE BETWEEN 25-100 MG PER DAY
     Route: 048
     Dates: start: 20160725, end: 20160802
  11. DOXEPIN [Suspect]
     Active Substance: DOXEPIN
     Dosage: 100 MG, QD
     Route: 065
     Dates: start: 20160803, end: 20160829
  12. LITHIUM CARBONATE. [Suspect]
     Active Substance: LITHIUM CARBONATE
     Dosage: 1125 MG, QD
     Route: 065
     Dates: start: 201601, end: 201608
  13. VITAMIN D [Concomitant]
     Active Substance: VITAMIN D NOS
     Indication: VITAMIN SUPPLEMENTATION
     Dosage: 500 IE PER DAY
     Route: 065
  14. SIRDALUD [Suspect]
     Active Substance: TIZANIDINE
     Dosage: 5 MG
     Route: 048
     Dates: start: 2016, end: 20160829
  15. PREGABALIN. [Suspect]
     Active Substance: PREGABALIN
     Indication: PRODUCT USED FOR UNKNOWN INDICATION
     Dosage: 300 MG, QD
     Route: 065
     Dates: start: 2014, end: 20160829
  16. PREGABALIN. [Suspect]
     Active Substance: PREGABALIN
     Dosage: 175 MG, QD
     Route: 048
     Dates: start: 20160731, end: 20160828
  17. DOXEPIN [Suspect]
     Active Substance: DOXEPIN
     Dosage: 100 MILLIGRAM, QD
     Route: 065
  18. VENLAFAXINE [Suspect]
     Active Substance: VENLAFAXINE HYDROCHLORIDE
     Indication: PRODUCT USED FOR UNKNOWN INDICATION
     Dosage: UNK
     Route: 065
     Dates: start: 201706
  19. LITHIUM CARBONATE. [Suspect]
     Active Substance: LITHIUM CARBONATE
     Dosage: 900 MG, QD
     Route: 065
     Dates: start: 20160731, end: 20160828
  20. LITHIUM CARBONATE. [Suspect]
     Active Substance: LITHIUM CARBONATE
     Dosage: 900 MG, QD
     Route: 065
     Dates: start: 201706, end: 20171123
  21. OMEPRAZOLE. [Concomitant]
     Active Substance: OMEPRAZOLE
     Dosage: 40 MG, QD
     Route: 065

REACTIONS (18)
  - Disease recurrence [Recovered/Resolved]
  - Oedema [Recovered/Resolved]
  - Hypoalbuminaemia [Recovered/Resolved]
  - Kidney enlargement [Unknown]
  - Pain [Unknown]
  - Drug ineffective [Unknown]
  - Proteinuria [Recovered/Resolved]
  - Persistent depressive disorder [Unknown]
  - Protein S decreased [Recovered/Resolved]
  - Albuminuria [Recovered/Resolved]
  - Weight increased [Recovered/Resolved]
  - Oedema [Recovered/Resolved]
  - Psychotic disorder [Unknown]
  - Nephrotic syndrome [Recovered/Resolved]
  - Pleural effusion [Recovered/Resolved]
  - Dyspnoea [Recovered/Resolved]
  - Nephrotic syndrome [Recovered/Resolved]
  - Haematuria [Recovered/Resolved]

NARRATIVE: CASE EVENT DATE: 2016
